FAERS Safety Report 4818646-5 (Version None)
Quarter: 2005Q4

REPORT INFORMATION
  Report Type: 
  Country: None (occurrence: None)
  Receive Date: 20051101
  Receipt Date: 20051019
  Transmission Date: 20060501
  Serious: Yes (Other)
  Sender: FDA-Public Use
  Company Number: 200513466BCC

PATIENT
  Age: 42 Year
  Sex: Female
  Weight: 63.5036 kg

DRUGS (2)
  1. RID SHAMPOO [Suspect]
     Indication: LICE INFESTATION
     Dosage: TOPICAL
     Route: 061
     Dates: start: 20050811
  2. IMITREX [Concomitant]

REACTIONS (12)
  - ANXIETY [None]
  - BLOOD PRESSURE INCREASED [None]
  - CHEST DISCOMFORT [None]
  - DYSGEUSIA [None]
  - DYSPHAGIA [None]
  - DYSPNOEA [None]
  - HYPERSENSITIVITY [None]
  - ORAL MUCOSAL BLISTERING [None]
  - PARAESTHESIA [None]
  - PHARYNGEAL OEDEMA [None]
  - RESPIRATORY RATE INCREASED [None]
  - VIRAL INFECTION [None]
